FAERS Safety Report 13509841 (Version 1)
Quarter: 2017Q2

REPORT INFORMATION
  Report Type: Spontaneous
  Country: US (occurrence: US)
  Receive Date: 20170503
  Receipt Date: 20170503
  Transmission Date: 20170830
  Serious: No
  Sender: FDA-Public Use
  Company Number: US-SA-2017SA047400

PATIENT
  Sex: Male

DRUGS (12)
  1. DESONIDE. [Concomitant]
     Active Substance: DESONIDE
     Dosage: 0.05%
  2. METOPROLOL. [Concomitant]
     Active Substance: METOPROLOL
     Dosage: 50MG
  3. OMEPRAZOLE. [Concomitant]
     Active Substance: OMEPRAZOLE
     Dosage: 40MG
  4. DUTASTERIDE. [Concomitant]
     Active Substance: DUTASTERIDE
     Dosage: 0.5MG
  5. ZETIA [Concomitant]
     Active Substance: EZETIMIBE
     Dosage: 10MG
  6. BRILINTA [Concomitant]
     Active Substance: TICAGRELOR
     Dosage: 90MG
  7. SERTRALINE [Concomitant]
     Active Substance: SERTRALINE HYDROCHLORIDE
     Dosage: 100MG
  8. VENTOLIN [Concomitant]
     Active Substance: ALBUTEROL SULFATE
  9. ALIROCUMAB PREFILLED PEN [Concomitant]
     Active Substance: ALIROCUMAB
     Dates: start: 20160331
  10. WARFARIN [Concomitant]
     Active Substance: WARFARIN
     Dosage: 10MG
  11. PLAVIX [Concomitant]
     Active Substance: CLOPIDOGREL BISULFATE
     Dosage: 75MG
  12. PRALUENT [Suspect]
     Active Substance: ALIROCUMAB
     Route: 058
     Dates: start: 20160331

REACTIONS (3)
  - Oropharyngeal pain [Not Recovered/Not Resolved]
  - Pharyngitis [Not Recovered/Not Resolved]
  - Dysphonia [Not Recovered/Not Resolved]
